FAERS Safety Report 13270563 (Version 1)
Quarter: 2017Q1

REPORT INFORMATION
  Report Type: Spontaneous
  Country: US (occurrence: US)
  Receive Date: 20170224
  Receipt Date: 20170224
  Transmission Date: 20170428
  Serious: Yes (Other)
  Sender: FDA-Public Use
  Company Number: US-SAOL THERAPEUTICS-2017SAO00377

PATIENT
  Sex: Female

DRUGS (3)
  1. BACLOFEN. [Suspect]
     Active Substance: BACLOFEN
     Indication: LUMBAR RADICULOPATHY
  2. BACLOFEN. [Suspect]
     Active Substance: BACLOFEN
     Indication: PAIN
  3. DILAUDID [Concomitant]
     Active Substance: HYDROMORPHONE HYDROCHLORIDE

REACTIONS (8)
  - Cerebrospinal fluid leakage [Unknown]
  - Pruritus [Unknown]
  - Pain [Unknown]
  - Intracranial hypotension [Unknown]
  - Off label use [Unknown]
  - Post lumbar puncture syndrome [Unknown]
  - Therapy non-responder [Unknown]
  - Insomnia [Unknown]
